FAERS Safety Report 13227661 (Version 2)
Quarter: 2018Q4

REPORT INFORMATION
  Report Type: Report from Study
  Country: DE (occurrence: DE)
  Receive Date: 20170213
  Receipt Date: 20181023
  Transmission Date: 20190204
  Serious: Yes (Hospitalization)
  Sender: FDA-Public Use
  Company Number: DE-JNJFOC-20170206251

PATIENT
  Age: 69 Year
  Sex: Male
  Weight: 107 kg

DRUGS (7)
  1. HYDROMORPHONE [Concomitant]
     Active Substance: HYDROMORPHONE
     Indication: PROSTATE CANCER METASTATIC
     Route: 065
     Dates: start: 20160804, end: 20170416
  2. ABIRATERONE ACETATE. [Suspect]
     Active Substance: ABIRATERONE ACETATE
     Indication: PROSTATE CANCER METASTATIC
     Route: 048
     Dates: start: 20150702, end: 20170416
  3. TRENANTONE [Concomitant]
     Active Substance: LEUPROLIDE ACETATE
     Indication: PROSTATE CANCER METASTATIC
     Route: 065
     Dates: start: 20150708, end: 20170416
  4. PREDNISOLONE. [Suspect]
     Active Substance: PREDNISOLONE
     Indication: PROSTATE CANCER METASTATIC
     Route: 065
     Dates: start: 20150702, end: 20170416
  5. NOVAMINSULFON [Concomitant]
     Active Substance: METAMIZOLE
     Indication: PROSTATE CANCER METASTATIC
     Route: 065
     Dates: start: 20150601, end: 20170416
  6. HYDROMORPHONE [Concomitant]
     Active Substance: HYDROMORPHONE
     Indication: PROSTATE CANCER METASTATIC
     Route: 065
     Dates: start: 20160714, end: 20160803
  7. HYDROMORPHONE [Concomitant]
     Active Substance: HYDROMORPHONE
     Indication: PROSTATE CANCER METASTATIC
     Route: 065
     Dates: start: 20150702, end: 20160713

REACTIONS (1)
  - Decubitus ulcer [Recovered/Resolved with Sequelae]

NARRATIVE: CASE EVENT DATE: 20170206
